FAERS Safety Report 18027899 (Version 2)
Quarter: 2025Q1

REPORT INFORMATION
  Report Type: Spontaneous
  Country: CA (occurrence: CA)
  Receive Date: 20200715
  Receipt Date: 20250317
  Transmission Date: 20250409
  Serious: Yes (Death, Other)
  Sender: ANI
  Company Number: CA-ANIPHARMA-2020-CA-001270

PATIENT
  Age: 80 Year
  Sex: Female

DRUGS (7)
  1. ANASTROZOLE [Suspect]
     Active Substance: ANASTROZOLE
     Indication: Product used for unknown indication
     Route: 048
  2. IBRANCE [Concomitant]
     Active Substance: PALBOCICLIB
     Route: 048
     Dates: start: 20170228
  3. ERGOCALCIFEROL [Concomitant]
     Active Substance: ERGOCALCIFEROL
     Route: 065
  4. LETROZOLE [Concomitant]
     Active Substance: LETROZOLE
     Route: 065
  5. METFORMIN [Concomitant]
     Active Substance: METFORMIN HYDROCHLORIDE
     Route: 065
  6. FERROUS FUMARATE [Concomitant]
     Active Substance: FERROUS FUMARATE
     Route: 065
  7. SYNTHROID [Concomitant]
     Active Substance: LEVOTHYROXINE SODIUM
     Route: 065

REACTIONS (2)
  - Death [Fatal]
  - Full blood count decreased [Fatal]

NARRATIVE: CASE EVENT DATE: 20190101
